FAERS Safety Report 5524753-4 (Version None)
Quarter: 2007Q4

REPORT INFORMATION
  Report Type: 
  Country: None (occurrence: None)
  Receive Date: 20071123
  Receipt Date: 20071119
  Transmission Date: 20080405
  Serious: Yes (Hospitalization, Other)
  Sender: FDA-Public Use
  Company Number: PHNU2007DE03071

PATIENT
  Age: 17 Year
  Sex: Female

DRUGS (3)
  1. EXJADE [Suspect]
     Indication: HAEMOSIDEROSIS
     Dosage: 1750 MG, QD
     Route: 048
     Dates: start: 20060930, end: 20070903
  2. ROCALTROL [Concomitant]
     Dates: start: 20040101, end: 20070903
  3. CYCLO-PROGYNOVA [Concomitant]
     Dates: start: 20040101, end: 20070903

REACTIONS (10)
  - ANTIBODY TEST POSITIVE [None]
  - BLOOD IMMUNOGLOBULIN A INCREASED [None]
  - BLOOD IMMUNOGLOBULIN G INCREASED [None]
  - CAMPYLOBACTER INFECTION [None]
  - DIPLOPIA [None]
  - GUILLAIN-BARRE SYNDROME [None]
  - IVTH NERVE PARESIS [None]
  - MONOPARESIS [None]
  - QUADRIPLEGIA [None]
  - URINARY TRACT INFECTION [None]
